FAERS Safety Report 4350412-X (Version None)
Quarter: 2004Q2

REPORT INFORMATION
  Report Type: 
  Country: None (occurrence: None)
  Receive Date: 20040427
  Receipt Date: 20040412
  Transmission Date: 20050107
  Serious: Yes (Other)
  Sender: FDA-Public Use
  Company Number: A03200401144

PATIENT
  Sex: Male

DRUGS (1)
  1. ALFUZOSIN HYDROCHLORIDE - TABLET PR - 10 MG [Suspect]
     Indication: POLLAKIURIA
     Dosage: ORAL
     Route: 048

REACTIONS (1)
  - DYSURIA [None]
